FAERS Safety Report 8559459-0 (Version None)
Quarter: 2012Q3

REPORT INFORMATION
  Report Type: 
  Country: None (occurrence: None)
  Receive Date: 20120802
  Receipt Date: 20120725
  Transmission Date: 20120928
  Serious: Yes (Other)
  Sender: FDA-Public Use
  Company Number: JP-JNJFOC-20120705264

PATIENT
  Age: 68 Year
  Sex: Male

DRUGS (10)
  1. TRAMADOL HCL [Suspect]
     Indication: PAIN
     Dosage: 1 TABLET 5 TIMES A DAY AS NEEDED
     Route: 048
  2. LYRICA [Concomitant]
     Route: 065
     Dates: end: 20120223
  3. LAXOBERON [Concomitant]
     Route: 048
     Dates: end: 20120223
  4. DEPAS [Concomitant]
     Route: 048
     Dates: end: 20120223
  5. MYONAL [Concomitant]
     Route: 048
     Dates: end: 20120223
  6. TRAMADOL HCL [Suspect]
     Dosage: 1 TABLET 5 TIMES A DAY AS NEEDED
     Route: 048
     Dates: start: 20111227, end: 20120223
  7. PHENYTOIN SODIUM CAP [Concomitant]
     Route: 065
     Dates: end: 20120223
  8. DEPAKENE [Concomitant]
     Route: 048
     Dates: end: 20120223
  9. MAGLAX [Concomitant]
     Route: 048
     Dates: end: 20120223
  10. OLMESARTAN MEDOXOMIL [Concomitant]
     Route: 048
     Dates: end: 20120223

REACTIONS (3)
  - INTESTINAL OBSTRUCTION [None]
  - INAPPROPRIATE SCHEDULE OF DRUG ADMINISTRATION [None]
  - INADEQUATE ANALGESIA [None]
